FAERS Safety Report 19967664 (Version 1)
Quarter: 2021Q4

REPORT INFORMATION
  Report Type: Spontaneous
  Country: US (occurrence: US)
  Receive Date: 20211018
  Receipt Date: 20211018
  Transmission Date: 20220303
  Serious: Yes (Hospitalization)
  Sender: FDA-Public Use
  Company Number: None

PATIENT
  Age: 46 Year
  Sex: Female
  Weight: 91.4 kg

DRUGS (1)
  1. BARICITINIB [Suspect]
     Active Substance: BARICITINIB
     Indication: COVID-19
     Dates: start: 20211002, end: 20211013

REACTIONS (3)
  - Faeces discoloured [None]
  - Haemoglobin decreased [None]
  - Gastric ulcer [None]

NARRATIVE: CASE EVENT DATE: 20211013
